FAERS Safety Report 17968514 (Version 1)
Quarter: 2020Q3

REPORT INFORMATION
  Report Type: Spontaneous
  Country: US (occurrence: US)
  Receive Date: 20200701
  Receipt Date: 20200701
  Transmission Date: 20201103
  Serious: No
  Sender: FDA-Public Use
  Company Number: US-BAYER-2020-123802

PATIENT
  Age: 46 Year

DRUGS (1)
  1. STIVARGA [Suspect]
     Active Substance: REGORAFENIB
     Dosage: 80 MG A DAY
     Dates: start: 20200525

REACTIONS (1)
  - Off label use [None]

NARRATIVE: CASE EVENT DATE: 20200525
